FAERS Safety Report 8409887-9 (Version None)
Quarter: 2012Q2

REPORT INFORMATION
  Report Type: 
  Country: None (occurrence: None)
  Receive Date: 20120605
  Receipt Date: 20120524
  Transmission Date: 20120825
  Serious: Yes (Hospitalization, Other)
  Sender: FDA-Public Use
  Company Number: CA-JNJFOC-20120507299

PATIENT
  Sex: Female
  Weight: 100 kg

DRUGS (2)
  1. IMURAN [Concomitant]
     Route: 065
  2. REMICADE [Suspect]
     Indication: CROHN'S DISEASE
     Route: 042
     Dates: start: 20110917

REACTIONS (3)
  - MATERNAL EXPOSURE DURING PREGNANCY [None]
  - COMPLICATION OF PREGNANCY [None]
  - ABORTION SPONTANEOUS [None]
